FAERS Safety Report 24585657 (Version 1)
Quarter: 2024Q4

REPORT INFORMATION
  Report Type: Spontaneous
  Country: US (occurrence: US)
  Receive Date: 20241106
  Receipt Date: 20241106
  Transmission Date: 20250115
  Serious: Yes (Other)
  Sender: DR REDDYS
  Company Number: US-DRL-USA-SPO/USA/24/0016311

PATIENT
  Sex: Female

DRUGS (2)
  1. TAMOXIFEN [Suspect]
     Active Substance: TAMOXIFEN
     Indication: Product used for unknown indication
  2. KISQALI [Concomitant]
     Active Substance: RIBOCICLIB
     Indication: Breast cancer

REACTIONS (1)
  - Electrocardiogram QT prolonged [Unknown]
